FAERS Safety Report 4884042-8 (Version None)
Quarter: 2005Q4

REPORT INFORMATION
  Report Type: 
  Country: None (occurrence: None)
  Receive Date: 20051201
  Receipt Date: 20050906
  Transmission Date: 20060501
  Serious: No
  Sender: FDA-Public Use
  Company Number: 2005PV001865

PATIENT
  Age: 67 Year
  Sex: Male

DRUGS (8)
  1. BYETTA [Suspect]
     Indication: DIABETES MELLITUS NON-INSULIN-DEPENDENT
     Dosage: 5 MCG; BID; SC
     Route: 058
     Dates: start: 20050901
  2. ADVICOR [Concomitant]
  3. DIOVAN [Concomitant]
  4. GLYBURIDE [Concomitant]
  5. DETROL LA [Concomitant]
  6. METFORMIN [Concomitant]
  7. MULTIVITAMIN [Concomitant]
  8. FLOMAX [Concomitant]

REACTIONS (2)
  - DIZZINESS [None]
  - HYPOTENSION [None]
